FAERS Safety Report 23451558 (Version 2)
Quarter: 2024Q1

REPORT INFORMATION
  Report Type: Spontaneous
  Country: US (occurrence: US)
  Receive Date: 20240129
  Receipt Date: 20240214
  Transmission Date: 20240410
  Serious: No
  Sender: FDA-Public Use
  Company Number: US-SA-SAC20240122000320

PATIENT
  Age: 62 Year
  Sex: Female

DRUGS (2)
  1. DUPIXENT [Suspect]
     Active Substance: DUPILUMAB
     Indication: Respiratory tract infection
     Dosage: 300 MG, QOW
     Route: 058
     Dates: start: 201910
  2. UPTRAVI [Suspect]
     Active Substance: SELEXIPAG
     Dosage: 400MCG IN THE MORNING AND 600MCG IN THE EVENING

REACTIONS (4)
  - Anxiety [Unknown]
  - Nausea [Unknown]
  - Diarrhoea [Unknown]
  - Product use in unapproved indication [Unknown]

NARRATIVE: CASE EVENT DATE: 20191001
